FAERS Safety Report 19701382 (Version 1)
Quarter: 2021Q3

REPORT INFORMATION
  Report Type: Spontaneous
  Country: HR (occurrence: HR)
  Receive Date: 20210813
  Receipt Date: 20210813
  Transmission Date: 20211014
  Serious: Yes (Hospitalization)
  Sender: FDA-Public Use
  Company Number: HR-ENDO PHARMACEUTICALS INC-2021-010941

PATIENT
  Age: 33 Year
  Sex: Male

DRUGS (3)
  1. METHADONE [Concomitant]
     Active Substance: METHADONE HYDROCHLORIDE
     Indication: DRUG WITHDRAWAL MAINTENANCE THERAPY
     Dosage: 45 MG, DAILY
     Route: 048
  2. METHADONE [Concomitant]
     Active Substance: METHADONE HYDROCHLORIDE
     Dosage: TOOK GREATER THAN 100 MG, UNKNOWN
     Route: 048
  3. ZOLPIDEM TARTRATE. [Suspect]
     Active Substance: ZOLPIDEM TARTRATE
     Indication: PRODUCT USED FOR UNKNOWN INDICATION
     Dosage: INJECTED FOUR DISSOLVED PILLS, UNKNOWN
     Route: 013

REACTIONS (6)
  - Ischaemic limb pain [Recovered/Resolved]
  - Incorrect route of product administration [Recovered/Resolved]
  - Compartment syndrome [Recovered/Resolved]
  - Peripheral ischaemia [Recovered/Resolved]
  - Disseminated intravascular coagulation [Recovered/Resolved]
  - Vascular occlusion [Recovered/Resolved]
